FAERS Safety Report 9697641 (Version 2)
Quarter: 2014Q1

REPORT INFORMATION
  Report Type: Spontaneous
  Country: US (occurrence: US)
  Receive Date: 20131120
  Receipt Date: 20140204
  Transmission Date: 20141002
  Serious: No
  Sender: FDA-Public Use
  Company Number: US-PFIZER INC-2013329954

PATIENT
  Sex: Female

DRUGS (2)
  1. LYRICA [Suspect]
     Dosage: UNK, THREE A DAY
  2. LYRICA [Suspect]
     Dosage: UNK, TWO A DAY

REACTIONS (2)
  - Depression [Unknown]
  - Drug intolerance [Unknown]
